FAERS Safety Report 10004888 (Version 1)
Quarter: 2014Q1

REPORT INFORMATION
  Report Type: Spontaneous
  Country: US (occurrence: US)
  Receive Date: 20140312
  Receipt Date: 20140312
  Transmission Date: 20141002
  Serious: No
  Sender: FDA-Public Use
  Company Number: US-PFIZER INC-2014068521

PATIENT
  Sex: Male

DRUGS (1)
  1. ADVIL MIGRAINE [Suspect]
     Dosage: UNK, EVERY 6-12 HOURS AS NEEDED
     Dates: start: 201402

REACTIONS (2)
  - Rash [Unknown]
  - Urticaria [Unknown]
